FAERS Safety Report 4854965-4 (Version None)
Quarter: 2005Q4

REPORT INFORMATION
  Report Type: 
  Country: None (occurrence: None)
  Receive Date: 20051214
  Receipt Date: 20051128
  Transmission Date: 20060501
  Serious: Yes (Death)
  Sender: FDA-Public Use
  Company Number: JP200512000004

PATIENT
  Age: 59 Year
  Sex: Male

DRUGS (14)
  1. ZYPREXA [Suspect]
     Indication: PROPHYLAXIS OF NAUSEA AND VOMITING
     Dosage: SEE IMAGE
     Route: 048
     Dates: start: 20050916, end: 20050919
  2. ZYPREXA [Suspect]
     Indication: PROPHYLAXIS OF NAUSEA AND VOMITING
     Dosage: SEE IMAGE
     Route: 048
     Dates: start: 20050920, end: 20051004
  3. ZYPREXA [Suspect]
     Indication: PROPHYLAXIS OF NAUSEA AND VOMITING
     Dosage: SEE IMAGE
     Route: 048
     Dates: start: 20051014, end: 20051017
  4. FLIVAS (NAFTOPIDIL) [Concomitant]
  5. UBRETID (DISTIGMINE BROMIDE) [Concomitant]
  6. TRAVELMIN (DIPHENHYDRAMINE SALICYLATE, DIPROPHYLLINE) [Concomitant]
  7. PURSENNIDE (SENNA LEAF) [Concomitant]
  8. MEILAX (ETHYL LOFLAZEPATE) [Concomitant]
  9. FENTANYL [Concomitant]
  10. ADJUST-A (SENNA LEAF) [Concomitant]
  11. PRIMPERAN TAB [Concomitant]
  12. SOLU-MEDROL [Concomitant]
  13. PREDNISOLONE [Concomitant]
  14. MORPHINE [Concomitant]

REACTIONS (3)
  - DELIRIUM [None]
  - DELUSION [None]
  - NAUSEA [None]
